FAERS Safety Report 8112293-8 (Version None)
Quarter: 2012Q1

REPORT INFORMATION
  Report Type: 
  Country: None (occurrence: None)
  Receive Date: 20120203
  Receipt Date: 20120203
  Transmission Date: 20120608
  Serious: Yes (Hospitalization)
  Sender: FDA-Public Use
  Company Number: None

PATIENT
  Age: 25 Year
  Sex: Female
  Weight: 93 kg

DRUGS (2)
  1. MULTI-VITAMIN [Concomitant]
     Route: 048
  2. YAZ [Suspect]
     Indication: CONTRACEPTION
     Dosage: 1 TAB
     Route: 048
     Dates: start: 20111201, end: 20120202

REACTIONS (4)
  - DYSPNOEA [None]
  - PAIN IN EXTREMITY [None]
  - CHEST PAIN [None]
  - DEEP VEIN THROMBOSIS [None]
